FAERS Safety Report 20668000 (Version 2)
Quarter: 2022Q2

REPORT INFORMATION
  Report Type: Spontaneous
  Country: US (occurrence: US)
  Receive Date: 20220404
  Receipt Date: 20220411
  Transmission Date: 20220721
  Serious: No
  Sender: FDA-Public Use
  Company Number: US-GSKCCFUS-Case-01332653_AE-77465

PATIENT
  Sex: Female

DRUGS (1)
  1. BENLYSTA [Suspect]
     Active Substance: BELIMUMAB
     Indication: Product used for unknown indication
     Dosage: 200 MG
     Dates: start: 202010

REACTIONS (5)
  - Injection site pain [Unknown]
  - Contusion [Unknown]
  - Weight increased [Unknown]
  - Accidental exposure to product [Unknown]
  - Product complaint [Unknown]
